FAERS Safety Report 10334832 (Version 1)
Quarter: 2014Q3

REPORT INFORMATION
  Report Type: Spontaneous
  Country: US (occurrence: None)
  Receive Date: 20140721
  Receipt Date: 20140721
  Transmission Date: 20150326
  Serious: Yes (Hospitalization, Other)
  Sender: FDA-Public Use
  Company Number: US-ZYDUS-004108

PATIENT
  Age: 65 Year
  Sex: Female

DRUGS (1)
  1. WARFARIN [Suspect]
     Active Substance: WARFARIN

REACTIONS (5)
  - Lividity [None]
  - Procedural site reaction [None]
  - Calciphylaxis [None]
  - Skin ulcer [None]
  - Skin hyperpigmentation [None]
